FAERS Safety Report 15654043 (Version 1)
Quarter: 2018Q4

REPORT INFORMATION
  Report Type: Spontaneous
  Country: US (occurrence: US)
  Receive Date: 20181124
  Receipt Date: 20181124
  Transmission Date: 20190205
  Serious: Yes (Other)
  Sender: FDA-Public Use
  Company Number: None

PATIENT
  Age: 11 Year
  Sex: Male

DRUGS (1)
  1. MONTEKULAST [Suspect]
     Active Substance: MONTELUKAST SODIUM
     Indication: ASTHMA
     Route: 048
     Dates: start: 20160303, end: 20160919

REACTIONS (5)
  - Hallucination [None]
  - Disturbance in attention [None]
  - Suicidal ideation [None]
  - Anxiety [None]
  - Nightmare [None]

NARRATIVE: CASE EVENT DATE: 20160910
